FAERS Safety Report 21589672 (Version 1)
Quarter: 2022Q4

REPORT INFORMATION
  Report Type: Report from Study
  Country: US (occurrence: US)
  Receive Date: 20221114
  Receipt Date: 20221114
  Transmission Date: 20230113
  Serious: Yes (Other)
  Sender: FDA-Public Use
  Company Number: US-ABBVIE-4196335

PATIENT
  Sex: Female

DRUGS (1)
  1. RINVOQ [Suspect]
     Active Substance: UPADACITINIB
     Indication: Rheumatoid arthritis
     Route: 048
     Dates: start: 20220309, end: 20220901

REACTIONS (4)
  - Medical device implantation [Recovering/Resolving]
  - Post procedural infection [Unknown]
  - Psoriasis [Unknown]
  - Incision site discharge [Unknown]

NARRATIVE: CASE EVENT DATE: 20220101
